FAERS Safety Report 7477770-1 (Version None)
Quarter: 2011Q2

REPORT INFORMATION
  Report Type: 
  Country: None (occurrence: None)
  Receive Date: 20110513
  Receipt Date: 20110203
  Transmission Date: 20111010
  Serious: No
  Sender: FDA-Public Use
  Company Number: A0911701A

PATIENT
  Age: 45 Year
  Sex: Female

DRUGS (1)
  1. TREXIMET [Suspect]
     Indication: MIGRAINE
     Dosage: 1TAB AS REQUIRED
     Route: 048
     Dates: start: 20090801

REACTIONS (3)
  - FATIGUE [None]
  - PAIN IN EXTREMITY [None]
  - MUSCULAR WEAKNESS [None]
